FAERS Safety Report 5166606-X (Version None)
Quarter: 2006Q4

REPORT INFORMATION
  Report Type: 
  Country: None (occurrence: None)
  Receive Date: 20061129
  Receipt Date: 20061114
  Transmission Date: 20070319
  Serious: Yes (Other)
  Sender: FDA-Public Use
  Company Number: 2006RR-03423

PATIENT
  Age: 1 Year
  Sex: Male

DRUGS (1)
  1. AMOXICILLIN [Suspect]
     Dosage: 125  MG, TID, ORAL
     Route: 048
     Dates: start: 20060620, end: 20060627

REACTIONS (3)
  - HYPERSENSITIVITY [None]
  - RASH MACULAR [None]
  - SWELLING FACE [None]
